FAERS Safety Report 26088936 (Version 1)
Quarter: 2025Q4

REPORT INFORMATION
  Report Type: Spontaneous
  Country: EU (occurrence: EU)
  Receive Date: 20251125
  Receipt Date: 20251125
  Transmission Date: 20260117
  Serious: Yes (Other)
  Sender: AMGEN
  Company Number: EU-AMGEN-IRLSP2025230606

PATIENT
  Age: 58 Year
  Sex: Male

DRUGS (2)
  1. ADALIMUMAB [Suspect]
     Active Substance: ADALIMUMAB
     Indication: Psoriatic arthropathy
     Dosage: UNK
     Route: 065
  2. METHOTREXATE [Suspect]
     Active Substance: METHOTREXATE
     Indication: Psoriatic arthropathy
     Dosage: UNK
     Route: 065

REACTIONS (12)
  - Mycobacterial infection [Unknown]
  - Skin necrosis [Unknown]
  - Pain [Unknown]
  - Granuloma [Unknown]
  - Skin ulcer [Not Recovered/Not Resolved]
  - Papule [Recovering/Resolving]
  - Mobility decreased [Unknown]
  - Skin lesion inflammation [Unknown]
  - Skin lesion [Not Recovered/Not Resolved]
  - Skin plaque [Unknown]
  - Skin hyperpigmentation [Unknown]
  - Alanine aminotransferase increased [Unknown]
